FAERS Safety Report 14398363 (Version 1)
Quarter: 2018Q1

REPORT INFORMATION
  Report Type: Spontaneous
  Country: FR (occurrence: FR)
  Receive Date: 20180116
  Receipt Date: 20180116
  Transmission Date: 20180509
  Serious: Yes (Death)
  Sender: FDA-Public Use
  Company Number: FR-MERCK KGAA-2040122

PATIENT
  Age: 52 Year
  Sex: Female

DRUGS (3)
  1. NOVOTHYROX [Suspect]
     Active Substance: LEVOTHYROXINE SODIUM
     Indication: HYPOTHYROIDISM
     Route: 048
     Dates: start: 201710
  2. EUTHYROX [Suspect]
     Active Substance: LEVOTHYROXINE SODIUM
     Route: 048
     Dates: start: 201710
  3. L THYROXIN HENNING [Suspect]
     Active Substance: LEVOTHYROXINE SODIUM
     Route: 048
     Dates: start: 2017

REACTIONS (7)
  - Blood thyroid stimulating hormone abnormal [Fatal]
  - Sleep disorder [Fatal]
  - Decreased appetite [Fatal]
  - Weight decreased [Fatal]
  - Headache [Fatal]
  - Anxiety [Fatal]
  - Completed suicide [Fatal]

NARRATIVE: CASE EVENT DATE: 20171207
